FAERS Safety Report 18601659 (Version 2)
Quarter: 2020Q4

REPORT INFORMATION
  Report Type: Spontaneous
  Country: IN (occurrence: IN)
  Receive Date: 20201210
  Receipt Date: 20201215
  Transmission Date: 20210114
  Serious: Yes (Death, Hospitalization, Other)
  Sender: FDA-Public Use
  Company Number: IN-PFIZER INC-2020480817

PATIENT
  Age: 68 Year
  Sex: Male
  Weight: 74.3 kg

DRUGS (10)
  1. DACOPLICE [Suspect]
     Active Substance: DACOMITINIB
     Dosage: 45 MG, ALTERNATE DAY (30MG/45MG ALTERNATE DAY)
     Dates: start: 20200604
  2. DACOPLICE [Suspect]
     Active Substance: DACOMITINIB
     Dosage: 30 MG, DAILY
     Dates: start: 20200619
  3. DACOPLICE [Suspect]
     Active Substance: DACOMITINIB
     Dosage: 30 MG, ALTERNATE DAY (30MG/45MG ALTERNATE DAY)
     Dates: start: 20200604
  4. DOXYCYCLINE. [Concomitant]
     Active Substance: DOXYCYCLINE
     Dosage: UNK
  5. ULTRACET [Concomitant]
     Active Substance: ACETAMINOPHEN\TRAMADOL HYDROCHLORIDE
     Indication: PAIN
     Dosage: UNK, AS NEEDED
  6. HYDROCORTISONE. [Concomitant]
     Active Substance: HYDROCORTISONE
     Indication: RASH
     Dosage: UNK
  7. DACOPLICE [Suspect]
     Active Substance: DACOMITINIB
     Dosage: 30 MG, DAILY
     Dates: start: 20191205
  8. DACOPLICE [Suspect]
     Active Substance: DACOMITINIB
     Dosage: 30 MG, 1X/DAY (15 MG 2 TABS ONCE DAILY)
     Route: 048
     Dates: start: 20200922, end: 20201213
  9. LOPERAMIDE [Concomitant]
     Active Substance: LOPERAMIDE
     Indication: DIARRHOEA
     Dosage: UNK, AS NEEDED
  10. MEGASTY [Concomitant]
     Dosage: UNK, 1X/DAY

REACTIONS (6)
  - Febrile neutropenia [Recovered/Resolved]
  - Dysgeusia [Unknown]
  - Productive cough [Unknown]
  - Chest pain [Unknown]
  - Fatigue [Unknown]
  - Death [Fatal]

NARRATIVE: CASE EVENT DATE: 20200107
